FAERS Safety Report 4399827-4 (Version None)
Quarter: 2004Q3

REPORT INFORMATION
  Report Type: 
  Country: None (occurrence: None)
  Receive Date: 20040714
  Receipt Date: 20040707
  Transmission Date: 20050211
  Serious: Yes (Disabling)
  Sender: FDA-Public Use
  Company Number: CAP04000123

PATIENT
  Age: 87 Year
  Sex: Male
  Weight: 48.5 kg

DRUGS (4)
  1. ACTONEL [Suspect]
     Indication: OSTEOPOROSIS
     Dosage: 5 MG ONCE DAILY, ORAL
     Route: 048
     Dates: start: 20020101
  2. ATROVENT [Concomitant]
  3. FLOVENT [Concomitant]
  4. TAMBOCOR [Concomitant]

REACTIONS (1)
  - DEAFNESS [None]
